FAERS Safety Report 18200772 (Version 4)
Quarter: 2020Q3

REPORT INFORMATION
  Report Type: Spontaneous
  Country: US (occurrence: US)
  Receive Date: 20200827
  Receipt Date: 20200916
  Transmission Date: 20201103
  Serious: No
  Sender: FDA-Public Use
  Company Number: US-AMGEN INC.-USASP2020137230

PATIENT
  Age: 56 Year
  Sex: Female

DRUGS (1)
  1. AIMOVIG [Suspect]
     Active Substance: ERENUMAB-AOOE
     Indication: MIGRAINE PROPHYLAXIS
     Dosage: 140 MILLIGRAM
     Route: 065
     Dates: start: 201909

REACTIONS (5)
  - Musculoskeletal stiffness [Recovered/Resolved]
  - Contusion [Recovered/Resolved]
  - Peripheral swelling [Recovered/Resolved]
  - Injury associated with device [Unknown]
  - Device use error [Unknown]

NARRATIVE: CASE EVENT DATE: 20200821
